FAERS Safety Report 10399636 (Version 2)
Quarter: 2014Q3

REPORT INFORMATION
  Report Type: Report from Study
  Country: US (occurrence: US)
  Receive Date: 20140821
  Receipt Date: 20140827
  Transmission Date: 20150326
  Serious: Yes (Hospitalization)
  Sender: FDA-Public Use
  Company Number: US-PFIZER INC-2014230622

PATIENT
  Age: 83 Year
  Sex: Male
  Weight: 69 kg

DRUGS (9)
  1. METOPROLOL TARTRATE. [Suspect]
     Active Substance: METOPROLOL TARTRATE
  2. CYANOCOBALAMIN. [Concomitant]
     Active Substance: CYANOCOBALAMIN
  3. HYDROCODONE ACETAMINOPHEN [Suspect]
     Active Substance: ACETAMINOPHEN\HYDROCODONE BITARTRATE
  4. TOLTERODINE [Concomitant]
     Active Substance: TOLTERODINE
  5. ASPIRINE [Concomitant]
     Active Substance: ASPIRIN
  6. ENZALUTAMIDE [Suspect]
     Active Substance: ENZALUTAMIDE
     Indication: PROSTATE CANCER
     Dosage: FORMULATION: CAPSULE, CYCLIC
     Dates: start: 20140509
  7. SIMVASTATIN. [Concomitant]
     Active Substance: SIMVASTATIN
  8. SPIRONOLACTONE. [Suspect]
     Active Substance: SPIRONOLACTONE
     Dosage: UNK
  9. ENZALUTAMIDE [Suspect]
     Active Substance: ENZALUTAMIDE
     Dosage: FORMULATION: CAPSULE, CYCLIC
     Dates: start: 20140606

REACTIONS (1)
  - Fall [Recovered/Resolved]

NARRATIVE: CASE EVENT DATE: 20140609
